FAERS Safety Report 11340567 (Version 1)
Quarter: 2015Q3

REPORT INFORMATION
  Report Type: Spontaneous
  Country: IT (occurrence: IT)
  Receive Date: 20150805
  Receipt Date: 20150805
  Transmission Date: 20151125
  Serious: Yes (Hospitalization)
  Sender: FDA-Public Use
  Company Number: IT-SA-2015SA113074

PATIENT
  Age: 34 Year
  Sex: Male

DRUGS (4)
  1. LANTUS SOLOSTAR [Suspect]
     Active Substance: INSULIN GLARGINE
     Indication: TYPE 1 DIABETES MELLITUS
     Dosage: DOSE AND DAILY DOSE- 26 IU (LESS THAN 100 DAILY)
     Route: 058
  2. NOVORAPID [Suspect]
     Active Substance: INSULIN ASPART
     Indication: TYPE 1 DIABETES MELLITUS
     Dosage: DOSE AND DAILY DOSE- 32 IU (LESS THAN 100 DAILY)
     Route: 058
  3. SOLOSTAR [Concomitant]
     Active Substance: DEVICE
     Indication: TYPE 1 DIABETES MELLITUS
  4. FLEXPEN [Concomitant]
     Active Substance: UNSPECIFIED INGREDIENT
     Indication: TYPE 1 DIABETES MELLITUS

REACTIONS (2)
  - Hypoglycaemia [Recovered/Resolved]
  - Injury [Recovered/Resolved]

NARRATIVE: CASE EVENT DATE: 20140415
